FAERS Safety Report 24043812 (Version 1)
Quarter: 2024Q3

REPORT INFORMATION
  Report Type: Spontaneous
  Country: US (occurrence: US)
  Receive Date: 20240703
  Receipt Date: 20240703
  Transmission Date: 20241017
  Serious: No
  Sender: BRISTOL MYERS SQUIBB
  Company Number: US-BRISTOL-MYERS SQUIBB COMPANY-2024-103377

PATIENT
  Age: 68 Year
  Sex: Male

DRUGS (1)
  1. LENALIDOMIDE [Suspect]
     Active Substance: LENALIDOMIDE
     Indication: Hypercalcaemia
     Dosage: TAKE 1 CAPSULE BY MOUTH DAILY ON DAYS 1-14 EVERY 21 DAYS
     Route: 048

REACTIONS (1)
  - Off label use [Unknown]
